FAERS Safety Report 21199734 (Version 10)
Quarter: 2025Q1

REPORT INFORMATION
  Report Type: Report from Study
  Country: CA (occurrence: CA)
  Receive Date: 20220811
  Receipt Date: 20250324
  Transmission Date: 20250408
  Serious: Yes (Hospitalization, Other)
  Sender: TAKEDA
  Company Number: CA-TAKEDA-2022TUS054116

PATIENT
  Sex: Female

DRUGS (17)
  1. VEDOLIZUMAB [Suspect]
     Active Substance: VEDOLIZUMAB
     Indication: Crohn^s disease
  2. VEDOLIZUMAB [Suspect]
     Active Substance: VEDOLIZUMAB
     Dosage: 300 MILLIGRAM, Q4WEEKS
     Dates: start: 20220426
  3. VEDOLIZUMAB [Suspect]
     Active Substance: VEDOLIZUMAB
     Dosage: 300 MILLIGRAM, Q4WEEKS
  4. VEDOLIZUMAB [Suspect]
     Active Substance: VEDOLIZUMAB
     Dosage: 300 MILLIGRAM, Q4WEEKS
  5. VEDOLIZUMAB [Suspect]
     Active Substance: VEDOLIZUMAB
     Dosage: 300 MILLIGRAM, Q4WEEKS
  6. VEDOLIZUMAB [Suspect]
     Active Substance: VEDOLIZUMAB
     Dosage: 300 MILLIGRAM, Q4WEEKS
  7. VEDOLIZUMAB [Suspect]
     Active Substance: VEDOLIZUMAB
     Dosage: 300 MILLIGRAM, Q4WEEKS
  8. Luteine [Concomitant]
  9. ACETAMINOPHEN [Concomitant]
     Active Substance: ACETAMINOPHEN
  10. ALENDRONATE [Concomitant]
     Active Substance: ALENDRONATE SODIUM
  11. DIAZEPAM [Concomitant]
     Active Substance: DIAZEPAM
  12. ELIQUIS [Concomitant]
     Active Substance: APIXABAN
  13. METOPROLOL [Concomitant]
     Active Substance: METOPROLOL
  14. PANTOPRAZOLE SODIUM [Concomitant]
     Active Substance: PANTOPRAZOLE SODIUM
  15. FERROUS SULFATE [Concomitant]
     Active Substance: FERROUS SULFATE
  16. CALCIUM\VITAMIN D [Concomitant]
     Active Substance: CALCIUM\VITAMIN D
  17. MIRTAZAPINE [Concomitant]
     Active Substance: MIRTAZAPINE

REACTIONS (21)
  - Blindness [Unknown]
  - Urosepsis [Unknown]
  - Endocarditis [Unknown]
  - Haematochezia [Unknown]
  - Pericarditis [Unknown]
  - Chronic obstructive pulmonary disease [Unknown]
  - Shoulder fracture [Unknown]
  - Loss of personal independence in daily activities [Unknown]
  - Rib fracture [Unknown]
  - Fall [Unknown]
  - Hypervolaemia [Unknown]
  - Inguinal hernia [Unknown]
  - Blood pressure abnormal [Recovered/Resolved]
  - Diarrhoea [Unknown]
  - Wound complication [Unknown]
  - Frequent bowel movements [Unknown]
  - Visual impairment [Unknown]
  - Off label use [Unknown]
  - Abdominal pain [Unknown]
  - Heart rate increased [Unknown]
  - Blood pressure decreased [Recovered/Resolved]

NARRATIVE: CASE EVENT DATE: 20220101
